FAERS Safety Report 23477409 (Version 1)
Quarter: 2024Q1

REPORT INFORMATION
  Report Type: Spontaneous
  Country: BR (occurrence: BR)
  Receive Date: 20240204
  Receipt Date: 20240204
  Transmission Date: 20240410
  Serious: No
  Sender: FDA-Public Use
  Company Number: BR-IPSEN Group, Research and Development-2023-16691

PATIENT
  Sex: Female
  Weight: 50 kg

DRUGS (2)
  1. CABOMETYX [Suspect]
     Active Substance: CABOZANTINIB S-MALATE
     Indication: Thyroid cancer
     Dosage: 20 MG, PER DAY
     Route: 065
     Dates: start: 20210101
  2. SYNTHROID [Concomitant]
     Active Substance: LEVOTHYROXINE SODIUM
     Indication: Blood pressure measurement

REACTIONS (1)
  - Liver disorder [Unknown]
